FAERS Safety Report 26067090 (Version 2)
Quarter: 2025Q4

REPORT INFORMATION
  Report Type: Report from Study
  Country: EU (occurrence: EU)
  Receive Date: 20251119
  Receipt Date: 20251123
  Transmission Date: 20260119
  Serious: Yes (Hospitalization)
  Sender: ABBVIE
  Company Number: EU-ABBVIE-6555202

PATIENT
  Age: 81 Year
  Sex: Female

DRUGS (1)
  1. FOSCARBIDOPA\FOSLEVODOPA [Suspect]
     Active Substance: FOSCARBIDOPA\FOSLEVODOPA
     Indication: Parkinson^s disease
     Route: 058
     Dates: start: 20240327

REACTIONS (6)
  - Haemoperitoneum [Recovered/Resolved]
  - Rib fracture [Recovered/Resolved]
  - On and off phenomenon [Unknown]
  - Dyskinesia [Not Recovered/Not Resolved]
  - Fall [Unknown]
  - Off label use [Recovering/Resolving]

NARRATIVE: CASE EVENT DATE: 20251101
